FAERS Safety Report 13859347 (Version 1)
Quarter: 2017Q3

REPORT INFORMATION
  Report Type: Spontaneous
  Country: CA (occurrence: CA)
  Receive Date: 20170811
  Receipt Date: 20170811
  Transmission Date: 20171127
  Serious: Yes (Other)
  Sender: FDA-Public Use
  Company Number: CA-AMGEN-CANSP2017119299

PATIENT
  Sex: Female

DRUGS (9)
  1. ENBREL [Suspect]
     Active Substance: ETANERCEPT
     Indication: RHEUMATOID ARTHRITIS
     Route: 065
  2. PLAQUENIL [Concomitant]
     Active Substance: HYDROXYCHLOROQUINE SULFATE
     Indication: RHEUMATOID ARTHRITIS
     Route: 065
  3. RITUXAN [Concomitant]
     Active Substance: RITUXIMAB
     Indication: RHEUMATOID ARTHRITIS
  4. CELLCEPT [Concomitant]
     Active Substance: MYCOPHENOLATE MOFETIL\MYCOPHENOLATE MOFETIL HYDROCHLORIDE
     Indication: RHEUMATOID ARTHRITIS
     Route: 065
  5. ORENCIA [Suspect]
     Active Substance: ABATACEPT
     Indication: RHEUMATOID ARTHRITIS
     Route: 065
  6. XELJANZ [Concomitant]
     Active Substance: TOFACITINIB CITRATE
     Indication: PRODUCT USED FOR UNKNOWN INDICATION
     Route: 065
  7. CICLOSPORIN [Concomitant]
     Active Substance: CYCLOSPORINE
     Indication: RHEUMATOID ARTHRITIS
     Route: 065
  8. IMURAN [Concomitant]
     Active Substance: AZATHIOPRINE
     Indication: RHEUMATOID ARTHRITIS
     Route: 065
  9. METHOTREXATE SODIUM. [Concomitant]
     Active Substance: METHOTREXATE SODIUM
     Indication: RHEUMATOID ARTHRITIS
     Route: 065

REACTIONS (17)
  - Arthritis [Unknown]
  - Joint swelling [Unknown]
  - Toxicity to various agents [Unknown]
  - Weight decreased [Unknown]
  - Elbow deformity [Unknown]
  - Musculoskeletal pain [Unknown]
  - Pain in jaw [Unknown]
  - Arthralgia [Unknown]
  - Jaw fracture [Unknown]
  - Neck pain [Unknown]
  - C-reactive protein abnormal [Unknown]
  - Dyspnoea [Unknown]
  - Fatigue [Unknown]
  - Pain in extremity [Unknown]
  - Drug intolerance [Unknown]
  - Red blood cell sedimentation rate abnormal [Unknown]
  - Chest pain [Unknown]
